FAERS Safety Report 6085127-3 (Version None)
Quarter: 2009Q1

REPORT INFORMATION
  Report Type: 
  Country: None (occurrence: None)
  Receive Date: 20090220
  Receipt Date: 20090217
  Transmission Date: 20090719
  Serious: Yes (Hospitalization)
  Sender: FDA-Public Use
  Company Number: PHHO2009CA01030

PATIENT
  Sex: Male
  Weight: 67.7 kg

DRUGS (1)
  1. ICL670A ICL+DISTAB [Suspect]
     Indication: BLOOD IRON INCREASED
     Dosage: 2500 MG, QD
     Route: 048
     Dates: start: 20060803

REACTIONS (3)
  - HEADACHE [None]
  - PYREXIA [None]
  - VIRAL INFECTION [None]
